FAERS Safety Report 14787257 (Version 1)
Quarter: 2018Q2

REPORT INFORMATION
  Report Type: Spontaneous
  Country: GB (occurrence: GB)
  Receive Date: 20180421
  Receipt Date: 20180421
  Transmission Date: 20180711
  Serious: Yes (Hospitalization)
  Sender: FDA-Public Use
  Company Number: GB-ROCHE-2107418

PATIENT
  Age: 95 Year
  Sex: Female

DRUGS (1)
  1. TAMIFLU [Suspect]
     Active Substance: OSELTAMIVIR PHOSPHATE
     Indication: ANTIVIRAL PROPHYLAXIS
     Route: 030

REACTIONS (6)
  - Skin hypertrophy [Unknown]
  - Skin exfoliation [Unknown]
  - Acute kidney injury [Not Recovered/Not Resolved]
  - Purpura [Unknown]
  - Dermatitis exfoliative generalised [Not Recovered/Not Resolved]
  - Heart rate increased [Unknown]

NARRATIVE: CASE EVENT DATE: 20180315
